FAERS Safety Report 6611018-2 (Version None)
Quarter: 2010Q1

REPORT INFORMATION
  Report Type: 
  Country: None (occurrence: None)
  Receive Date: 20100222
  Receipt Date: 20100208
  Transmission Date: 20100710
  Serious: Yes (Hospitalization)
  Sender: FDA-Public Use
  Company Number: 2008AL010316

PATIENT
  Age: 1 Hour
  Sex: Male

DRUGS (2)
  1. FLUOXETINE [Suspect]
     Indication: DRUG EXPOSURE DURING PREGNANCY
     Dosage: 20 MG; QD; TRMA
     Route: 063
  2. SYTRON [Concomitant]

REACTIONS (3)
  - MATERNAL DRUGS AFFECTING FOETUS [None]
  - SMALL FOR DATES BABY [None]
  - WEIGHT GAIN POOR [None]
